FAERS Safety Report 9158288 (Version 1)
Quarter: 2013Q1

REPORT INFORMATION
  Report Type: Spontaneous
  Country: US (occurrence: US)
  Receive Date: 20130312
  Receipt Date: 20130312
  Transmission Date: 20140127
  Serious: Yes (Hospitalization)
  Sender: FDA-Public Use
  Company Number: US-BAYER-2013-028744

PATIENT
  Age: 30 Year
  Sex: Female
  Weight: 110 kg

DRUGS (11)
  1. YASMIN [Suspect]
  2. PRENATAL VITAMINS [VIT C,B5,B12,D2,B3,B6,RETINOL PALMIT,B2,B1 MONO [Concomitant]
  3. ALBUTEROL INHALER [Concomitant]
  4. IBUPROFEN [IBUPROFEN] [Concomitant]
  5. KETOCONAZOLE [Concomitant]
  6. KETOCONAZOLE [Concomitant]
  7. FLOVENT [Concomitant]
  8. FLAGYL [Concomitant]
  9. HEPARIN [Concomitant]
     Indication: PULMONARY EMBOLISM
  10. HEPARIN [Concomitant]
     Indication: DEEP VEIN THROMBOSIS
  11. DILAUDID [Concomitant]
     Indication: PAIN

REACTIONS (2)
  - Deep vein thrombosis [None]
  - Pulmonary embolism [None]
